FAERS Safety Report 15322121 (Version 2)
Quarter: 2019Q3

REPORT INFORMATION
  Report Type: Report from Study
  Country: CA (occurrence: CA)
  Receive Date: 20180827
  Receipt Date: 20190925
  Transmission Date: 20191004
  Serious: Yes (Other)
  Sender: FDA-Public Use
  Company Number: CA-PFIZER INC-2018339458

PATIENT
  Age: 31 Year
  Sex: Female
  Weight: 72.6 kg

DRUGS (19)
  1. RITUXAN [Suspect]
     Active Substance: RITUXIMAB
     Dosage: 500 MG, UNK
     Route: 042
     Dates: start: 20141204
  2. ACETAMINOPHEN. [Concomitant]
     Active Substance: ACETAMINOPHEN
     Indication: PREMEDICATION
     Dosage: 650 MG, UNK
     Route: 048
     Dates: start: 20120815
  3. ALESSE 28 [Suspect]
     Active Substance: ETHINYL ESTRADIOL\LEVONORGESTREL
     Dosage: UNK
     Route: 065
  4. DIPHENHYDRAMINE HYDROCHLORIDE. [Concomitant]
     Active Substance: DIPHENHYDRAMINE HYDROCHLORIDE
     Indication: PREMEDICATION
     Dosage: 50 MG, UNK
     Route: 048
     Dates: start: 20120119
  5. VITAMINS NOS [Concomitant]
     Active Substance: VITAMINS
  6. RITUXAN [Suspect]
     Active Substance: RITUXIMAB
     Indication: GRANULOMATOSIS WITH POLYANGIITIS
     Dosage: 2540 MG WEEKLY (635 MG, 4 EVERY 1 WEEK) ( 635MG 4 TIMES  A WEEK IN WEEK 2,3, AND 4)
     Route: 042
     Dates: start: 20120126
  7. RITUXAN [Suspect]
     Active Substance: RITUXIMAB
     Dosage: 1000 MG, UNK
     Route: 042
  8. RITUXAN [Suspect]
     Active Substance: RITUXIMAB
     Dosage: 1000 MG
     Route: 042
     Dates: start: 20151005
  9. VITAMIN E [Concomitant]
     Active Substance: .ALPHA.-TOCOPHEROL
     Dosage: UNK
  10. RITUXAN [Suspect]
     Active Substance: RITUXIMAB
     Dosage: 1000 MG, UNK
     Route: 042
     Dates: start: 20120815, end: 20120815
  11. EPINASTINE HYDROCHLORIDE. [Concomitant]
     Active Substance: EPINASTINE HYDROCHLORIDE
     Dosage: UNK
  12. VITAMIN C [Concomitant]
     Active Substance: ASCORBIC ACID
     Dosage: UNK
  13. CALCIUM + MAGNESIUM [Concomitant]
     Active Substance: CALCIUM\MAGNESIUM
  14. RITUXAN [Suspect]
     Active Substance: RITUXIMAB
     Indication: GRANULOMATOSIS WITH POLYANGIITIS
     Dosage: 4000 MG WEEKLY (1000 MG, 4 EVERY 1 WEEK) (100MG 4 TIMES A WEEK IN WEEK 1)
     Route: 042
     Dates: start: 20120119
  15. ACETAMINOPHEN. [Concomitant]
     Active Substance: ACETAMINOPHEN
     Dosage: 1000 MG, UNK
     Route: 048
  16. METHOTREXATE. [Concomitant]
     Active Substance: METHOTREXATE
     Dosage: UNK
  17. METHYLPREDNISOLONE. [Concomitant]
     Active Substance: METHYLPREDNISOLONE
     Indication: PREMEDICATION
     Dosage: 100 MG, UNK
     Route: 042
     Dates: start: 20120119
  18. FOLIC ACID. [Concomitant]
     Active Substance: FOLIC ACID
     Dosage: UNK
  19. SELENIUM [Concomitant]
     Active Substance: SELENIUM
     Dosage: UNK

REACTIONS (5)
  - Sinus disorder [Recovering/Resolving]
  - B-lymphocyte count decreased [Unknown]
  - Maternal exposure during pregnancy [Unknown]
  - Enzyme level abnormal [Not Recovered/Not Resolved]
  - Arthralgia [Recovering/Resolving]

NARRATIVE: CASE EVENT DATE: 2013
